FAERS Safety Report 5868428-0 (Version None)
Quarter: 2008Q3

REPORT INFORMATION
  Report Type: 
  Country: None (occurrence: None)
  Receive Date: 20080903
  Receipt Date: 20080828
  Transmission Date: 20090109
  Serious: Yes (Other)
  Sender: FDA-Public Use
  Company Number: US-BAYER-200826653NA

PATIENT
  Sex: Female

DRUGS (1)
  1. MIRENA [Suspect]
     Indication: CONTRACEPTION
     Route: 015
     Dates: start: 20080505, end: 20080609

REACTIONS (2)
  - ABDOMINAL PAIN LOWER [None]
  - ECTOPIC PREGNANCY WITH INTRAUTERINE DEVICE [None]
